FAERS Safety Report 10219189 (Version 3)
Quarter: 2014Q3

REPORT INFORMATION
  Report Type: Spontaneous
  Country: BR (occurrence: BR)
  Receive Date: 20140605
  Receipt Date: 20140709
  Transmission Date: 20150326
  Serious: Yes (Other)
  Sender: FDA-Public Use
  Company Number: BR-PFIZER INC-2014137150

PATIENT
  Age: 69 Year
  Sex: Female

DRUGS (2)
  1. LYRICA [Suspect]
     Active Substance: PREGABALIN
     Indication: SPINAL PAIN
     Dosage: 75 MG (1 CAPSULE), DAILY
     Route: 048
     Dates: start: 20140428
  2. CELEBRA [Suspect]
     Active Substance: CELECOXIB
     Indication: SPINAL PAIN
     Dosage: UNK, 1X/DAY
     Dates: start: 20140428

REACTIONS (9)
  - Spinal column stenosis [Unknown]
  - Drug ineffective [Not Recovered/Not Resolved]
  - Depression [Unknown]
  - Pain in extremity [Unknown]
  - Asthenia [Unknown]
  - Insomnia [Unknown]
  - Neuralgia [Unknown]
  - Spondylolisthesis [Unknown]
  - Anxiety [Unknown]

NARRATIVE: CASE EVENT DATE: 2014
